FAERS Safety Report 8471042-4 (Version None)
Quarter: 2012Q2

REPORT INFORMATION
  Report Type: 
  Country: None (occurrence: None)
  Receive Date: 20120627
  Receipt Date: 20120612
  Transmission Date: 20120825
  Serious: No
  Sender: FDA-Public Use
  Company Number: US-ROXANE LABORATORIES, INC.-2012-RO-01416RO

PATIENT
  Age: 61 Year
  Sex: Male

DRUGS (2)
  1. BYSTOLIC [Concomitant]
     Indication: ATRIAL FIBRILLATION
  2. FLECAINIDE ACETATE [Suspect]
     Indication: ATRIAL FIBRILLATION
     Dosage: 150 MG
     Route: 048
     Dates: start: 20120606

REACTIONS (1)
  - VISION BLURRED [None]
